FAERS Safety Report 7193043-9 (Version None)
Quarter: 2010Q4

REPORT INFORMATION
  Report Type: 
  Country: None (occurrence: None)
  Receive Date: 20101223
  Receipt Date: 20101216
  Transmission Date: 20110411
  Serious: Yes (Disabling)
  Sender: FDA-Public Use
  Company Number: CA-MERCK-1012USA02609

PATIENT
  Age: 78 Year
  Sex: Male
  Weight: 77 kg

DRUGS (7)
  1. PROSCAR [Suspect]
     Route: 048
  2. AGGRENOX [Concomitant]
     Route: 065
  3. ASPIRIN [Concomitant]
     Route: 065
  4. DIOVAN [Concomitant]
     Route: 065
  5. DOXAZOSIN MESYLATE [Concomitant]
     Route: 065
  6. INDAPAMIDE [Concomitant]
     Route: 065
  7. LIPITOR [Concomitant]
     Route: 065

REACTIONS (3)
  - MUSCLE DISORDER [None]
  - PAIN IN EXTREMITY [None]
  - PARKINSONIAN GAIT [None]
